FAERS Safety Report 6111230-5 (Version None)
Quarter: 2009Q1

REPORT INFORMATION
  Report Type: 
  Country: None (occurrence: None)
  Receive Date: 20090311
  Receipt Date: 20090306
  Transmission Date: 20090719
  Serious: Yes (Life-Threatening)
  Sender: FDA-Public Use
  Company Number: PHHY2009MX08450

PATIENT
  Age: 62 Year
  Sex: Female

DRUGS (5)
  1. DIOVAN HCT [Suspect]
     Indication: HYPERTENSION
     Dosage: 1 TABLE (320 MG VALSARTAN/25 MG HYDROCHLOROTHIAZIDE) PER DAY
     Route: 048
     Dates: start: 20070201
  2. INSULIN [Concomitant]
  3. VERAPAMIL [Concomitant]
  4. DIGOXIN [Concomitant]
  5. ASPIRIN [Concomitant]

REACTIONS (3)
  - COAGULOPATHY [None]
  - FEELING ABNORMAL [None]
  - GASTROINTESTINAL DISORDER [None]
